FAERS Safety Report 25214924 (Version 1)
Quarter: 2025Q2

REPORT INFORMATION
  Report Type: Spontaneous
  Country: US (occurrence: None)
  Receive Date: 20250418
  Receipt Date: 20250418
  Transmission Date: 20250717
  Serious: Yes (Other)
  Sender: FDA-CTU
  Company Number: None

PATIENT
  Age: 67 Year
  Sex: Male
  Weight: 88 kg

DRUGS (2)
  1. APHEXDA [Suspect]
     Active Substance: MOTIXAFORTIDE ACETATE
     Route: 058
     Dates: start: 20240916, end: 20240918
  2. FULPHILA [Concomitant]
     Active Substance: PEGFILGRASTIM-JMDB
     Dates: start: 20240913, end: 20240913

REACTIONS (1)
  - Panniculitis [None]

NARRATIVE: CASE EVENT DATE: 20240916
